FAERS Safety Report 13234018 (Version 1)
Quarter: 2017Q1

REPORT INFORMATION
  Report Type: Spontaneous
  Country: GB (occurrence: GB)
  Receive Date: 20170215
  Receipt Date: 20170215
  Transmission Date: 20170428
  Serious: Yes (Other)
  Sender: FDA-Public Use
  Company Number: GB-TEVA-740091ACC

PATIENT
  Age: 70 Year
  Sex: Male
  Weight: 72 kg

DRUGS (6)
  1. FINASTERIDE. [Concomitant]
     Active Substance: FINASTERIDE
     Dosage: 1 DOSAGE FORMS DAILY;
     Dates: start: 20161219, end: 20170116
  2. SINTHROME [Concomitant]
     Active Substance: ACENOCOUMAROL
     Dates: start: 20160315
  3. FRAGMIN [Concomitant]
     Active Substance: DALTEPARIN SODIUM
     Dosage: 1 DOSAGE FORMS DAILY;
     Dates: start: 20161129, end: 20161209
  4. TRIMETHOPRIM. [Suspect]
     Active Substance: TRIMETHOPRIM
     Indication: PROSTATITIS
     Dates: start: 20170127
  5. OFLOXACIN. [Concomitant]
     Active Substance: OFLOXACIN
     Dosage: 2 DOSAGE FORMS DAILY;
     Dates: start: 20170127
  6. TAMSULOSIN HYDROCHLORIDE. [Concomitant]
     Active Substance: TAMSULOSIN HYDROCHLORIDE
     Dosage: 1 DOSAGE FORMS DAILY;
     Dates: start: 20160115

REACTIONS (1)
  - Eye swelling [Recovered/Resolved]

NARRATIVE: CASE EVENT DATE: 20170127
